FAERS Safety Report 21722143 (Version 1)
Quarter: 2022Q4

REPORT INFORMATION
  Report Type: Spontaneous
  Country: NO (occurrence: NO)
  Receive Date: 20221213
  Receipt Date: 20221213
  Transmission Date: 20230112
  Serious: Yes (Death, Life-Threatening, Hospitalization)
  Sender: FDA-Public Use
  Company Number: None

PATIENT
  Age: 78 Year
  Sex: Female

DRUGS (12)
  1. MYCOPHENOLIC ACID [Suspect]
     Active Substance: MYCOPHENOLIC ACID
     Indication: Drug-induced liver injury
     Dosage: STRENGTH: 250 MG MILLIGRAM(S)??1 GRAM X 2, LATER 1 GRAM X 3. DISCONTINUED 29/OCT/2022
  2. TACROLIMUS [Suspect]
     Active Substance: TACROLIMUS
     Indication: Drug-induced liver injury
     Dosage: STRENGTH: 1 MG MILLIGRAM(S), 3.5 MG X 2, LATER 2.5 MG X 2
     Dates: start: 20221024, end: 20221111
  3. METHYLPREDNISOLONE [Suspect]
     Active Substance: METHYLPREDNISOLONE
     Indication: Drug-induced liver injury
     Dosage: STRENGTH: 40 MG MILLIGRAM(S)
  4. GANCICLOVIR [Suspect]
     Active Substance: GANCICLOVIR
     Indication: Cytomegalovirus hepatitis
     Dosage: STRENGTH: 500 MG MILLIGRAM(S)
     Dates: start: 20221102, end: 20221111
  5. CHOLECALCIFEROL [Concomitant]
     Active Substance: CHOLECALCIFEROL
     Dosage: 800 IU INTERNATIONAL UNIT(S)
  6. KABIVEN [Concomitant]
     Active Substance: AMINO ACIDS\ANHYDROUS DEXTROSE\CALCIUM CHLORIDE\MAGNESIUM SULFATE HEPTAHYDRATE\POTASSIUM CHLORIDE\SO
  7. IMOVANE [Concomitant]
     Active Substance: ZOPICLONE
     Dosage: STRENGTH 7.5 MG MILLIGRAM(S)
  8. NEXIUM [Concomitant]
     Active Substance: ESOMEPRAZOLE MAGNESIUM
     Dosage: STRENGTH: 20 MG MILLIGRAM(S)
  9. DIBUCAINE HYDROCHLORIDE\PREDNISOLONE [Concomitant]
     Active Substance: DIBUCAINE HYDROCHLORIDE\PREDNISOLONE
     Dosage: STRENGTH: 1 MG AND 1.3 MG
  10. METOPROLOL [Concomitant]
     Active Substance: METOPROLOL
     Dosage: STRENGTH: 50 MG MILLIGRAM(S)
  11. VAGIFEM [Concomitant]
     Active Substance: ESTRADIOL
     Dosage: STRENGTH: 10 MICROGRAM(S)
  12. AMITRIPTYLINE [Concomitant]
     Active Substance: AMITRIPTYLINE
     Dosage: STRENGTH: 10 MG MILLIGRAM(S)

REACTIONS (5)
  - Hypernatraemia [Fatal]
  - Staphylococcal sepsis [Fatal]
  - Hyperglycaemic hyperosmolar nonketotic syndrome [Fatal]
  - Metabolic acidosis [Fatal]
  - Fungal sepsis [Fatal]
